FAERS Safety Report 8493028 (Version 3)
Quarter: 2013Q1

REPORT INFORMATION
  Report Type: Spontaneous
  Country: BR (occurrence: BR)
  Receive Date: 20120404
  Receipt Date: 20130202
  Transmission Date: 20140127
  Serious: Yes (Other)
  Sender: FDA-Public Use
  Company Number: PHHY2012BR002038

PATIENT
  Sex: Male

DRUGS (4)
  1. XOLAIR [Suspect]
     Indication: CHRONIC OBSTRUCTIVE PULMONARY DISEASE
     Dosage: UNK UKN, UNK
  2. XOLAIR [Suspect]
     Dosage: UNK UKN, UNK
  3. FORASEQ [Suspect]
     Dosage: 1 DF, Q12H
  4. COMBIVENT [Concomitant]
     Indication: CHRONIC OBSTRUCTIVE PULMONARY DISEASE
     Dosage: 1 DF, Q6H

REACTIONS (8)
  - Respiratory tract infection [Recovering/Resolving]
  - Sputum discoloured [Recovering/Resolving]
  - Wheezing [Recovering/Resolving]
  - Increased upper airway secretion [Recovering/Resolving]
  - General physical health deterioration [Recovering/Resolving]
  - Malaise [Recovering/Resolving]
  - Cough [Recovering/Resolving]
  - Fatigue [Recovering/Resolving]
